FAERS Safety Report 9819987 (Version 2)
Quarter: 2014Q1

REPORT INFORMATION
  Report Type: Spontaneous
  Country: US (occurrence: US)
  Receive Date: 20140116
  Receipt Date: 20140217
  Transmission Date: 20141002
  Serious: No
  Sender: FDA-Public Use
  Company Number: US-TEVA-456320USA

PATIENT
  Age: 18 Year
  Sex: Female

DRUGS (3)
  1. CLARAVIS [Suspect]
     Dates: start: 20131125
  2. CLARAVIS [Suspect]
     Route: 048
  3. BIRTH CONTROL PILLS [Concomitant]

REACTIONS (1)
  - Platelet count increased [Recovered/Resolved]
